FAERS Safety Report 6636724-5 (Version None)
Quarter: 2010Q1

REPORT INFORMATION
  Report Type: 
  Country: None (occurrence: None)
  Receive Date: 20100316
  Receipt Date: 20100308
  Transmission Date: 20100710
  Serious: Yes (Other)
  Sender: FDA-Public Use
  Company Number: B0639039A

PATIENT
  Sex: Female

DRUGS (10)
  1. ZANTAC [Suspect]
     Indication: DUODENAL ULCER
     Route: 048
     Dates: start: 20081101, end: 20081101
  2. ZANTAC [Suspect]
     Dosage: 300MG PER DAY
     Route: 048
     Dates: start: 20091022, end: 20091022
  3. TAIPROTON [Suspect]
     Indication: DUODENAL ULCER
     Route: 065
  4. AMLODIPINE [Concomitant]
     Indication: DRUG USE FOR UNKNOWN INDICATION
     Dosage: 5MG PER DAY
     Route: 048
  5. MEVAN [Concomitant]
     Indication: DRUG USE FOR UNKNOWN INDICATION
     Dosage: 5MG PER DAY
     Route: 048
  6. URSO 250 [Concomitant]
     Indication: DRUG USE FOR UNKNOWN INDICATION
     Dosage: 100MG PER DAY
     Route: 048
  7. MUCOSTA [Concomitant]
     Indication: DRUG USE FOR UNKNOWN INDICATION
     Dosage: 100MG PER DAY
     Route: 048
  8. VENCOLL [Concomitant]
     Indication: DRUG USE FOR UNKNOWN INDICATION
     Route: 048
  9. MARZULENE [Concomitant]
     Indication: DRUG USE FOR UNKNOWN INDICATION
     Route: 048
  10. BUP-4 [Concomitant]
     Indication: DRUG USE FOR UNKNOWN INDICATION
     Dosage: 10MG PER DAY
     Route: 048

REACTIONS (7)
  - ANAPHYLACTOID REACTION [None]
  - DYSPNOEA [None]
  - HEPATIC ENZYME INCREASED [None]
  - HYPOTENSION [None]
  - PAINFUL RESPIRATION [None]
  - PRURITUS GENERALISED [None]
  - RASH GENERALISED [None]
